FAERS Safety Report 5683973-9 (Version None)
Quarter: 2008Q1

REPORT INFORMATION
  Report Type: 
  Country: None (occurrence: None)
  Receive Date: 20080328
  Receipt Date: 20080321
  Transmission Date: 20080703
  Serious: Yes (Life-Threatening, Hospitalization, Other)
  Sender: FDA-Public Use
  Company Number: PHBS2007JP17921

PATIENT
  Age: 77 Year
  Sex: Female
  Weight: 57 kg

DRUGS (11)
  1. AMARYL [Concomitant]
     Dosage: 3 MG/D
     Route: 048
     Dates: start: 20070925, end: 20071008
  2. TENORMIN [Concomitant]
     Dosage: 25 MG/D
     Route: 048
     Dates: end: 20071008
  3. MICARDIS [Concomitant]
     Dosage: 40 MG/D
     Route: 048
     Dates: end: 20071008
  4. CARDENALIN [Concomitant]
     Dosage: 1 MG/D
     Route: 048
     Dates: end: 20071008
  5. MYSLEE [Concomitant]
     Dosage: 5 MG/D
     Route: 048
     Dates: end: 20071008
  6. GLEEVEC [Suspect]
     Indication: ACUTE LYMPHOCYTIC LEUKAEMIA
     Dosage: 400 MG/D
     Route: 048
     Dates: start: 20070926, end: 20071008
  7. GLEEVEC [Suspect]
     Dosage: 200MG/DAY
     Dates: start: 20071027, end: 20071107
  8. ASPARA K [Concomitant]
     Dosage: 1200MG
     Route: 048
  9. MAGMITT [Concomitant]
     Dosage: 1000MG
     Route: 048
  10. MUCOSTA [Concomitant]
     Dosage: 300MG
     Route: 048
  11. DIAZEPAM [Concomitant]
     Dosage: 6MG
     Route: 048

REACTIONS (9)
  - ALTERED STATE OF CONSCIOUSNESS [None]
  - BLOOD GLUCOSE INCREASED [None]
  - COMA [None]
  - DISORIENTATION [None]
  - HYPOGLYCAEMIA [None]
  - LYMPHOCYTE COUNT DECREASED [None]
  - MUSCLE RIGIDITY [None]
  - PUPILLARY LIGHT REFLEX TESTS ABNORMAL [None]
  - SOMNOLENCE [None]
